FAERS Safety Report 14904942 (Version 1)
Quarter: 2018Q2

REPORT INFORMATION
  Report Type: Spontaneous
  Country: FR (occurrence: FR)
  Receive Date: 20180517
  Receipt Date: 20180517
  Transmission Date: 20180711
  Serious: Yes (Death, Life-Threatening, Hospitalization)
  Sender: FDA-Public Use
  Company Number: FR-CONCORDIA PHARMACEUTICALS INC.-E2B_00011701

PATIENT
  Age: 17 Year
  Sex: Male
  Weight: 57.8 kg

DRUGS (5)
  1. PREDNISOLONE. [Suspect]
     Active Substance: PREDNISOLONE
     Indication: ACUTE LEUKAEMIA
     Route: 048
     Dates: start: 20180403
  2. ONCASPAR [Interacting]
     Active Substance: PEGASPARGASE
     Indication: ACUTE LEUKAEMIA
     Route: 042
     Dates: start: 20180403
  3. DAUNORUBICINE [Concomitant]
     Active Substance: DAUNORUBICIN
     Indication: ACUTE LEUKAEMIA
     Route: 041
     Dates: start: 20180329, end: 20180412
  4. VINCRISTINE TEVA [Concomitant]
     Active Substance: VINCRISTINE
     Indication: ACUTE LEUKAEMIA
     Route: 042
     Dates: start: 20180329, end: 20180412
  5. METHOTREXATE (METHOTREXATE SODIUM) [Concomitant]
     Active Substance: METHOTREXATE SODIUM
     Indication: ACUTE LEUKAEMIA
     Route: 037
     Dates: start: 20180322

REACTIONS (1)
  - Pancreatitis acute [Fatal]

NARRATIVE: CASE EVENT DATE: 20180421
